FAERS Safety Report 4538783-2 (Version None)
Quarter: 2004Q4

REPORT INFORMATION
  Report Type: 
  Country: None (occurrence: None)
  Receive Date: 20041222
  Receipt Date: 20041208
  Transmission Date: 20050328
  Serious: Yes (Hospitalization)
  Sender: FDA-Public Use
  Company Number: CAR 2004-017

PATIENT
  Sex: Female

DRUGS (3)
  1. PREVACID [Suspect]
     Indication: EROSIVE OESOPHAGITIS
     Dosage: 120 MG GASTROTOMY TUBE
     Dates: start: 20030101
  2. CARAFATE [Suspect]
     Indication: GASTROINTESTINAL HAEMORRHAGE
  3. UNSPECIFIED H2 BLOCKER (CIMETIDINE HYDROCHLORIDE) [Suspect]

REACTIONS (2)
  - ANAEMIA [None]
  - GASTROINTESTINAL HAEMORRHAGE [None]
